FAERS Safety Report 6928162-2 (Version None)
Quarter: 2010Q3

REPORT INFORMATION
  Report Type: 
  Country: None (occurrence: None)
  Receive Date: 20100812
  Receipt Date: 20100809
  Transmission Date: 20110219
  Serious: Yes (Other)
  Sender: FDA-Public Use
  Company Number: GRT 2010-14456

PATIENT
  Age: 59 Year
  Sex: Female

DRUGS (3)
  1. LIDOCAINE HCL [Suspect]
     Indication: POST HERPETIC NEURALGIA
     Dates: start: 20100714, end: 20100727
  2. PREGABALIN [Concomitant]
  3. OXYCODONE [Concomitant]

REACTIONS (2)
  - BACK PAIN [None]
  - IRRITABILITY [None]
